FAERS Safety Report 21151628 (Version 1)
Quarter: 2022Q3

REPORT INFORMATION
  Report Type: Report from Study
  Country: US (occurrence: US)
  Receive Date: 20220730
  Receipt Date: 20220730
  Transmission Date: 20221027
  Serious: No
  Sender: FDA-Public Use
  Company Number: US-NOVARTISTESTPH-NVSC2022US172803

PATIENT

DRUGS (1)
  1. TOBI [Suspect]
     Active Substance: TOBRAMYCIN
     Indication: Product used for unknown indication
     Dosage: 5 ML, BID (FOR 28 DAYS. TAKE 3 MONTHS UNINTERRUPTED)
     Route: 065

REACTIONS (1)
  - Product use issue [Unknown]
